FAERS Safety Report 5353250-4 (Version None)
Quarter: 2007Q2

REPORT INFORMATION
  Report Type: 
  Country: None (occurrence: None)
  Receive Date: 20070608
  Receipt Date: 20070530
  Transmission Date: 20071010
  Serious: Yes (Hospitalization)
  Sender: FDA-Public Use
  Company Number: JPI-P-001532

PATIENT
  Sex: Male

DRUGS (9)
  1. XYREM [Suspect]
     Indication: CATAPLEXY
     Dosage: ORAL
     Route: 048
     Dates: start: 20020101
  2. SIMVASTATIN [Concomitant]
  3. METFORMIN HCL [Concomitant]
  4. RITALIN [Concomitant]
  5. NIFEDIPINE [Concomitant]
  6. HYDROCHLOROTHIAZIDE [Concomitant]
  7. ATENOLOL [Concomitant]
  8. LISINOPRIL [Concomitant]
  9. CLARITIN [Concomitant]

REACTIONS (3)
  - BLOOD PRESSURE SYSTOLIC INCREASED [None]
  - HEART RATE INCREASED [None]
  - MYOCARDIAL INFARCTION [None]
